FAERS Safety Report 9411281 (Version 1)
Quarter: 2013Q3

REPORT INFORMATION
  Report Type: Spontaneous
  Country: FR (occurrence: FR)
  Receive Date: 20130722
  Receipt Date: 20130722
  Transmission Date: 20140515
  Serious: Yes (Death, Other)
  Sender: FDA-Public Use
  Company Number: FR-BIOGENIDEC-2013BI066466

PATIENT
  Sex: Female

DRUGS (2)
  1. TYSABRI [Suspect]
     Indication: MULTIPLE SCLEROSIS
     Route: 042
  2. FAMPYRA [Concomitant]
     Indication: GAIT DISTURBANCE

REACTIONS (2)
  - Breast abscess [Unknown]
  - Completed suicide [Fatal]
